FAERS Safety Report 12656926 (Version 1)
Quarter: 2016Q3

REPORT INFORMATION
  Report Type: Spontaneous
  Country: US (occurrence: US)
  Receive Date: 20160816
  Receipt Date: 20160816
  Transmission Date: 20161109
  Serious: Yes (Other)
  Sender: FDA-Public Use
  Company Number: US-AMGEN-USASP2016103172

PATIENT
  Age: 69 Year
  Sex: Female

DRUGS (7)
  1. NEULASTA [Suspect]
     Active Substance: PEGFILGRASTIM
     Indication: PRODUCT USED FOR UNKNOWN INDICATION
     Dosage: UNK
     Route: 065
  2. CARBOPLATIN. [Concomitant]
     Active Substance: CARBOPLATIN
     Dosage: UNK
  3. NEUPOGEN [Suspect]
     Active Substance: FILGRASTIM
     Dosage: UNK
     Route: 065
     Dates: start: 201401
  4. NEULASTA [Suspect]
     Active Substance: PEGFILGRASTIM
     Dosage: UNK
     Route: 065
     Dates: start: 201603
  5. DOXEL [Concomitant]
     Dosage: UNK
  6. NEULASTA [Suspect]
     Active Substance: PEGFILGRASTIM
     Dosage: UNK
     Route: 065
     Dates: start: 20160707
  7. NEUPOGEN [Suspect]
     Active Substance: FILGRASTIM
     Indication: PRODUCT USED FOR UNKNOWN INDICATION
     Dosage: UNK
     Route: 065

REACTIONS (16)
  - Fallopian tube cancer [Unknown]
  - Feeling abnormal [Unknown]
  - Bone pain [Unknown]
  - Application site pain [Unknown]
  - Haemorrhage [Unknown]
  - Pelvic pain [Unknown]
  - Constipation [Unknown]
  - Anaemia [Unknown]
  - Back pain [Unknown]
  - Recurrent cancer [Unknown]
  - Arthralgia [Unknown]
  - Breast pain [Unknown]
  - Thrombosis [Unknown]
  - Ileostomy [Unknown]
  - Functional gastrointestinal disorder [Unknown]
  - Pain in extremity [Unknown]

NARRATIVE: CASE EVENT DATE: 201401
